FAERS Safety Report 16899851 (Version 1)
Quarter: 2019Q4

REPORT INFORMATION
  Report Type: Spontaneous
  Country: US (occurrence: US)
  Receive Date: 20191008
  Receipt Date: 20191008
  Transmission Date: 20200122
  Serious: Yes (Other)
  Sender: FDA-Public Use
  Company Number: None

PATIENT
  Age: 33 Year
  Sex: Female
  Weight: 80.55 kg

DRUGS (2)
  1. EMGALITY [Suspect]
     Active Substance: GALCANEZUMAB-GNLM
     Indication: MIGRAINE
     Dosage: ?          QUANTITY:2 INJECTION(S);OTHER FREQUENCY:2 CONSECUTIVE INJE;OTHER ROUTE:SUB Q INJECTION?
     Route: 058
     Dates: start: 20191008
  2. EMGALITY [Suspect]
     Active Substance: GALCANEZUMAB-GNLM
     Indication: CLUSTER HEADACHE
     Dosage: ?          QUANTITY:2 INJECTION(S);OTHER FREQUENCY:2 CONSECUTIVE INJE;OTHER ROUTE:SUB Q INJECTION?
     Route: 058
     Dates: start: 20191008

REACTIONS (1)
  - Tachycardia [None]

NARRATIVE: CASE EVENT DATE: 20191008
